FAERS Safety Report 12154990 (Version 10)
Quarter: 2020Q3

REPORT INFORMATION
  Report Type: Report from Study
  Country: GB (occurrence: GB)
  Receive Date: 20160307
  Receipt Date: 20170221
  Transmission Date: 20201104
  Serious: Yes (Death, Hospitalization)
  Sender: FDA-Public Use
  Company Number: GB-JNJFOC-20160301600

PATIENT
  Age: 65 Year
  Sex: Female
  Weight: 71 kg

DRUGS (2)
  1. DARATUMUMAB [Suspect]
     Active Substance: DARATUMUMAB
     Route: 042
  2. DARATUMUMAB [Suspect]
     Active Substance: DARATUMUMAB
     Indication: PLASMA CELL MYELOMA
     Dosage: DOSE WAS ROUNDED DOWN TO 1120 MG
     Route: 042
     Dates: start: 20160223, end: 20160301

REACTIONS (6)
  - Tremor [Recovered/Resolved]
  - Renal impairment [Fatal]
  - Diarrhoea [Recovered/Resolved]
  - Pyrexia [Fatal]
  - Neutropenia [Fatal]
  - Acute kidney injury [Recovered/Resolved]

NARRATIVE: CASE EVENT DATE: 20160227
